FAERS Safety Report 10049997 (Version 1)
Quarter: 2014Q2

REPORT INFORMATION
  Report Type: Spontaneous
  Country: FR (occurrence: FR)
  Receive Date: 20140401
  Receipt Date: 20140401
  Transmission Date: 20141212
  Serious: Yes (Hospitalization)
  Sender: FDA-Public Use
  Company Number: FR-SA-2014SA035634

PATIENT
  Age: 53 Year
  Sex: Female

DRUGS (8)
  1. RIFATER [Suspect]
     Indication: TUBERCULOSIS
     Route: 048
     Dates: start: 20140206, end: 20140220
  2. PANTOPRAZOLE [Suspect]
     Indication: PRODUCT USED FOR UNKNOWN INDICATION
     Route: 048
     Dates: start: 20140117, end: 20140220
  3. TRAMADOL HYDROCHLORIDE [Suspect]
     Indication: PAIN
     Route: 048
     Dates: start: 20131016
  4. THIOCOLCHICOSIDE [Suspect]
     Indication: PAIN
     Route: 048
     Dates: start: 20140117, end: 20140215
  5. ETHAMBUTOL [Suspect]
     Indication: TUBERCULOSIS
     Route: 048
     Dates: start: 20140206, end: 20140220
  6. LYRICA [Suspect]
     Indication: PAIN
     Route: 048
     Dates: start: 20131016
  7. PARACETAMOL [Concomitant]
  8. UVEDOSE [Concomitant]

REACTIONS (5)
  - Full blood count abnormal [Recovered/Resolved]
  - Neutropenia [Recovered/Resolved]
  - Hepatocellular injury [Recovered/Resolved]
  - Pyrexia [Recovered/Resolved]
  - Thrombocytopenia [Recovered/Resolved]
